FAERS Safety Report 7419642-4 (Version None)
Quarter: 2011Q2

REPORT INFORMATION
  Report Type: 
  Country: None (occurrence: None)
  Receive Date: 20110418
  Receipt Date: 20110408
  Transmission Date: 20111010
  Serious: Yes (Other)
  Sender: FDA-Public Use
  Company Number: TR-US-EMD SERONO, INC.-7052726

PATIENT
  Sex: Female
  Weight: 52 kg

DRUGS (5)
  1. HIDROKORTIZON [Concomitant]
     Indication: HYPOPITUITARISM
     Route: 048
     Dates: start: 20080101
  2. SAIZEN [Suspect]
     Indication: GROWTH HORMONE DEFICIENCY
     Route: 058
     Dates: start: 20080201, end: 20110408
  3. MINIRIN NASAL SPRAY [Concomitant]
     Indication: HYPOPITUITARISM
     Route: 045
     Dates: start: 20080101
  4. SUSTANON [Concomitant]
     Indication: HYPOPITUITARISM
     Route: 030
     Dates: start: 20080101
  5. LEVOTIRON [Concomitant]
     Indication: HYPOPITUITARISM
     Route: 048
     Dates: start: 20080101

REACTIONS (2)
  - BLINDNESS [None]
  - NEOPLASM PROGRESSION [None]
